FAERS Safety Report 7952522-4 (Version None)
Quarter: 2011Q4

REPORT INFORMATION
  Report Type: 
  Country: None (occurrence: None)
  Receive Date: 20111201
  Receipt Date: 20111129
  Transmission Date: 20120403
  Serious: Yes (Death, Hospitalization)
  Sender: FDA-Public Use
  Company Number: US-PFIZER INC-2011243361

PATIENT
  Sex: Male

DRUGS (1)
  1. XALKORI [Suspect]
     Dosage: 250 MG, 2X/DAY
     Dates: start: 20111001, end: 20111001

REACTIONS (5)
  - DEATH [None]
  - HYPERSOMNIA [None]
  - DIARRHOEA [None]
  - PRODUCTIVE COUGH [None]
  - FATIGUE [None]
